FAERS Safety Report 6308190-0 (Version None)
Quarter: 2009Q3

REPORT INFORMATION
  Report Type: 
  Country: None (occurrence: None)
  Receive Date: 20090813
  Receipt Date: 20090805
  Transmission Date: 20100115
  Serious: Yes (Hospitalization)
  Sender: FDA-Public Use
  Company Number: GB-PFIZER INC-2009224176

PATIENT
  Age: 53 Year

DRUGS (3)
  1. EPIRUBICIN HCL [Suspect]
     Indication: BREAST CANCER
     Dosage: 185 MG, UNK
     Dates: start: 20040213, end: 20040326
  2. FLUOROURACIL [Suspect]
     Indication: BREAST CANCER
     Dosage: 935 MG, UNK
     Dates: start: 20040213, end: 20040326
  3. CYCLOPHOSPHAMIDE [Suspect]
     Indication: BREAST CANCER
     Dosage: 935 MG, UNK
     Dates: start: 20040213, end: 20040326

REACTIONS (2)
  - GENITAL ULCERATION [None]
  - NEUTROPENIA [None]
